FAERS Safety Report 23504446 (Version 1)
Quarter: 2024Q1

REPORT INFORMATION
  Report Type: Spontaneous
  Country: US (occurrence: US)
  Receive Date: 20240209
  Receipt Date: 20240209
  Transmission Date: 20240410
  Serious: No
  Sender: FDA-Public Use
  Company Number: US-IGSA-BIG0024962

PATIENT
  Sex: Female
  Weight: 121.09 kg

DRUGS (6)
  1. PROLASTIN-C LIQUID [Suspect]
     Active Substance: .ALPHA.1-PROTEINASE INHIBITOR HUMAN
     Indication: Alpha-1 antitrypsin deficiency
     Dosage: 7260 MILLIGRAM, Q.WK.
     Route: 042
     Dates: start: 20180927
  2. HYDROCHLOROTHIAZIDE [Concomitant]
     Active Substance: HYDROCHLOROTHIAZIDE
  3. XOLAIR [Concomitant]
     Active Substance: OMALIZUMAB
  4. LEXAPRO [Concomitant]
     Active Substance: ESCITALOPRAM OXALATE
  5. OZEMPIC [Concomitant]
     Active Substance: SEMAGLUTIDE
  6. ACTOS [Concomitant]
     Active Substance: PIOGLITAZONE HYDROCHLORIDE

REACTIONS (2)
  - Rash vesicular [Not Recovered/Not Resolved]
  - Pruritus [Not Recovered/Not Resolved]
